FAERS Safety Report 11190316 (Version 1)
Quarter: 2015Q2

REPORT INFORMATION
  Report Type: Spontaneous
  Country: US (occurrence: None)
  Receive Date: 20150612
  Receipt Date: 20150612
  Transmission Date: 20150821
  Serious: Yes (Disabling)
  Sender: FDA-Public Use
  Company Number: None

PATIENT
  Age: 47 Year
  Sex: Female
  Weight: 65.77 kg

DRUGS (6)
  1. TRIAMCINOLONE [Suspect]
     Active Substance: TRIAMCINOLONE
     Indication: ALOPECIA AREATA
     Dosage: EVERY 4 WEEKS, INJECTED ON SCALP
     Dates: start: 20150521
  2. VITAMIN B12 [Suspect]
     Active Substance: CYANOCOBALAMIN
  3. BIOTIN [Suspect]
     Active Substance: BIOTIN
  4. BETAMETHASONE DIPROPIONATE AUGMENTED [Suspect]
     Active Substance: BETAMETHASONE DIPROPIONATE
     Indication: ALOPECIA AREATA
     Dosage: APPLY TO SCALP LESION 1 TO 2 T, TWICE DAILY, APPLIED TO A SURFACE USUALLY THE SKIN
     Route: 061
     Dates: start: 20150521, end: 20150601
  5. D3 [Suspect]
     Active Substance: 25-HYDROXYCHOLECALCIFEROL, 5-TRANS-
  6. MULTI VITAMIN [Suspect]
     Active Substance: VITAMINS

REACTIONS (10)
  - Vision blurred [None]
  - Anxiety [None]
  - Chest pain [None]
  - Malaise [None]
  - Drug hypersensitivity [None]
  - Dizziness [None]
  - Hypoaesthesia [None]
  - Ear pain [None]
  - Balance disorder [None]
  - Panic attack [None]

NARRATIVE: CASE EVENT DATE: 20150521
